FAERS Safety Report 5675447-6 (Version None)
Quarter: 2008Q2

REPORT INFORMATION
  Report Type: 
  Country: None (occurrence: None)
  Receive Date: 20080311
  Receipt Date: 20070416
  Transmission Date: 20081010
  Serious: Yes (Other)
  Sender: FDA-Public Use
  Company Number: PHEH2007US05586

PATIENT
  Sex: Female

DRUGS (1)
  1. TRILEPTAL [Suspect]

REACTIONS (5)
  - ANXIETY [None]
  - DISABILITY [None]
  - INJURY [None]
  - PAIN [None]
  - STEVENS-JOHNSON SYNDROME [None]
